FAERS Safety Report 5628430-0 (Version None)
Quarter: 2008Q1

REPORT INFORMATION
  Report Type: 
  Country: None (occurrence: None)
  Receive Date: 20080131
  Receipt Date: 20071030
  Transmission Date: 20080703
  Serious: No
  Sender: FDA-Public Use
  Company Number: 163-21880-07101802

PATIENT
  Age: 83 Year
  Sex: Male
  Weight: 74.8435 kg

DRUGS (16)
  1. REVLIMID [Suspect]
     Indication: MULTIPLE MYELOMA
     Dosage: 25 MG, DAILY FOR 21 DAYS, ORAL
     Route: 048
     Dates: start: 20061206
  2. CORTISONE ACETATE [Concomitant]
  3. NEXIUM [Concomitant]
  4. PLAVIX [Concomitant]
  5. ADVAIR DISKUS (SERETIDE MITE) [Concomitant]
  6. FLUOXETINE [Concomitant]
  7. WARFARIN SODIUM [Concomitant]
  8. ZOMETA [Concomitant]
  9. RANITIDINE [Concomitant]
  10. L-LYSINE (LYSINE) [Concomitant]
  11. COENZYME Q10 [Concomitant]
  12. ASCORBIC ACID [Concomitant]
  13. VITAMIN E [Concomitant]
  14. AMIODARONE HCL [Concomitant]
  15. DEXAMETHASONE TAB [Concomitant]
  16. ATENOLOL [Concomitant]

REACTIONS (2)
  - ABDOMINAL DISCOMFORT [None]
  - FLATULENCE [None]
